FAERS Safety Report 9110616 (Version 1)
Quarter: 2013Q1

REPORT INFORMATION
  Report Type: Spontaneous
  Country: US (occurrence: US)
  Receive Date: 20130219
  Receipt Date: 20130219
  Transmission Date: 20140127
  Serious: No
  Sender: FDA-Public Use
  Company Number: US-BRISTOL-MYERS SQUIBB COMPANY-16321150

PATIENT
  Sex: Female

DRUGS (2)
  1. ORENCIA [Suspect]
     Indication: RHEUMATOID ARTHRITIS
     Dosage: IV 14OCT-NOV11. 3 INF. SUBCUTANEOUS FROM 23NOV11
     Route: 058
     Dates: start: 20111123
  2. ACTEMRA [Suspect]

REACTIONS (3)
  - Drug ineffective [Unknown]
  - Oral candidiasis [Unknown]
  - Osteoarthritis [Unknown]
